FAERS Safety Report 8395498-0 (Version None)
Quarter: 2012Q2

REPORT INFORMATION
  Report Type: 
  Country: None (occurrence: None)
  Receive Date: 20120530
  Receipt Date: 20110511
  Transmission Date: 20120825
  Serious: No
  Sender: FDA-Public Use
  Company Number: US-GLAXOSMITHKLINE-A0926987A

PATIENT
  Age: 74 Year
  Sex: Male

DRUGS (7)
  1. AMLODIPINE BESYLATE AND BENAZEPRIL HCL [Concomitant]
  2. LEVAQUIN [Concomitant]
  3. HYDROCHLOROTHIAZIDE [Concomitant]
  4. PLAVIX [Concomitant]
  5. CRESTOR [Concomitant]
  6. SYNTHROID [Concomitant]
  7. VENTOLIN [Suspect]
     Indication: UPPER RESPIRATORY TRACT INFECTION
     Dosage: 2PUFF SIX TIMES PER DAY
     Route: 055
     Dates: start: 20110504, end: 20110505

REACTIONS (2)
  - ORAL MUCOSAL BLISTERING [None]
  - LIP BLISTER [None]
